FAERS Safety Report 21534608 (Version 1)
Quarter: 2022Q4

REPORT INFORMATION
  Report Type: Spontaneous
  Country: US (occurrence: None)
  Receive Date: 20221031
  Receipt Date: 20221031
  Transmission Date: 20230112
  Serious: Yes (unspecified)
  Sender: FDA-Public Use
  Company Number: None

PATIENT
  Age: 67 Year
  Sex: Female
  Weight: 56.25 kg

DRUGS (2)
  1. COMBIPATCH [Suspect]
     Active Substance: ESTRADIOL\NORETHINDRONE ACETATE
     Indication: Arthralgia
     Dosage: OTHER STRENGTH : 50/250;?OTHER QUANTITY : 1 PATCH(ES);?OTHER FREQUENCY : EVERY 4 DAYS;?
     Route: 062
     Dates: start: 20220914, end: 20221014
  2. simivastatin [Concomitant]

REACTIONS (11)
  - Burning sensation mucosal [None]
  - Stomatitis [None]
  - Nausea [None]
  - Fatigue [None]
  - Swelling face [None]
  - Pruritus [None]
  - Thirst [None]
  - Pollakiuria [None]
  - Gastrooesophageal reflux disease [None]
  - Nightmare [None]
  - Breast pain [None]

NARRATIVE: CASE EVENT DATE: 20221014
